FAERS Safety Report 7820550-5 (Version None)
Quarter: 2011Q4

REPORT INFORMATION
  Report Type: 
  Country: None (occurrence: None)
  Receive Date: 20111018
  Receipt Date: 20111005
  Transmission Date: 20120403
  Serious: Yes (Other)
  Sender: FDA-Public Use
  Company Number: PHHY2011BR89116

PATIENT
  Sex: Female

DRUGS (2)
  1. FORMOTEROL FUMARATE [Suspect]
     Indication: ASTHMA
     Dosage: 12/400 MCG
  2. FORMOTEROL FUMARATE [Suspect]
     Indication: DYSPNOEA

REACTIONS (4)
  - OROPHARYNGEAL PAIN [None]
  - ASTHMA [None]
  - DYSPNOEA [None]
  - SINUSITIS [None]
